FAERS Safety Report 14621340 (Version 2)
Quarter: 2018Q2

REPORT INFORMATION
  Report Type: Spontaneous
  Country: US (occurrence: US)
  Receive Date: 20180310
  Receipt Date: 20180427
  Transmission Date: 20180711
  Serious: Yes (Other)
  Sender: FDA-Public Use
  Company Number: US-009507513-1802USA013641

PATIENT
  Age: 80 Year
  Sex: Male

DRUGS (2)
  1. MYCOBACTERIUM BOVIS (BACILLUS OF CALMETTE AND GUERIN) LIVE ATTENUATED [Suspect]
     Active Substance: BACILLUS CALMETTE-GUERIN SUBSTRAIN TICE LIVE ANTIGEN
     Indication: BLADDER CANCER
     Dosage: 6 INSTILLATIONS, 50MG IN 50CC OF NACL
     Route: 043
     Dates: start: 20111222, end: 20120126
  2. INTRON A [Suspect]
     Active Substance: INTERFERON ALFA-2B
     Indication: BLADDER CANCER
     Dosage: UNK
     Dates: start: 20111222, end: 20120126

REACTIONS (2)
  - Granulomatous lymphadenitis [Recovered/Resolved]
  - Balanoposthitis [Recovered/Resolved]

NARRATIVE: CASE EVENT DATE: 20120131
